FAERS Safety Report 22071834 (Version 2)
Quarter: 2023Q2

REPORT INFORMATION
  Report Type: Report from Study
  Country: GB (occurrence: GB)
  Receive Date: 20230307
  Receipt Date: 20230428
  Transmission Date: 20230722
  Serious: Yes (Hospitalization, Other)
  Sender: FDA-Public Use
  Company Number: GB-CELLTRION INC.-2023GB004695

PATIENT

DRUGS (128)
  1. TRASTUZUMAB [Suspect]
     Active Substance: TRASTUZUMAB
     Indication: Breast cancer
     Dosage: 462 MG ( LOADING DOSE)(CUMULATIVE DOSE TO FIRST REACTION: 20349 MG)
     Route: 042
     Dates: start: 20150506, end: 20150506
  2. TRASTUZUMAB [Suspect]
     Active Substance: TRASTUZUMAB
     Dosage: 462 MG ( LOADING DOSE)(CUMULATIVE DOSE TO FIRST REACTION: 20349 MG)
     Route: 042
     Dates: start: 20150506, end: 20150506
  3. TRASTUZUMAB [Suspect]
     Active Substance: TRASTUZUMAB
     Dosage: 1071 MG, Q3W (CUMULATIVE DOSE TO FIRST REACTION: 20349MG)
     Route: 042
     Dates: start: 20150527, end: 20160630
  4. TRASTUZUMAB [Suspect]
     Active Substance: TRASTUZUMAB
     Dosage: 357 MG, Q3W (CUMULATIVE DOSE TO FIRST REACTION: 20349 MG)
     Route: 042
     Dates: start: 20170620
  5. TRASTUZUMAB [Suspect]
     Active Substance: TRASTUZUMAB
     Dosage: 357 MG, Q3W (CUMULATIVE DOSE TO FIRST REACTION: 20349 MG)
     Route: 042
     Dates: start: 20170620
  6. TRASTUZUMAB [Suspect]
     Active Substance: TRASTUZUMAB
     Dosage: 357 MILLIGRAMS, Q 3 WEEKS
     Route: 042
     Dates: start: 20150527, end: 20160630
  7. TRASTUZUMAB [Suspect]
     Active Substance: TRASTUZUMAB
     Dosage: 357 MILLIGRAMS, Q 3 WEEKS
     Route: 042
     Dates: start: 20150527, end: 20160630
  8. ANASTROZOLE [Suspect]
     Active Substance: ANASTROZOLE
     Indication: Breast cancer
     Dosage: 1 MG, QD
     Route: 048
     Dates: start: 20151021, end: 20171027
  9. ANASTROZOLE [Suspect]
     Active Substance: ANASTROZOLE
     Dosage: 1 MILLIGRAM, QD
     Route: 048
  10. CAPECITABINE [Suspect]
     Active Substance: CAPECITABINE
     Indication: Breast cancer
     Dosage: 1650 MILLIGRAM
     Route: 042
     Dates: start: 20150901, end: 20160914
  11. CAPECITABINE [Suspect]
     Active Substance: CAPECITABINE
     Dosage: 3300 MILLIGRAM
     Route: 042
     Dates: start: 20150901, end: 20160914
  12. CAPECITABINE [Suspect]
     Active Substance: CAPECITABINE
     Dosage: 1650 MILLIGRAM
     Route: 048
     Dates: start: 20150901
  13. CAPECITABINE [Suspect]
     Active Substance: CAPECITABINE
     Dosage: 3300 MILLIGRAM
     Route: 048
     Dates: start: 20160901, end: 20160914
  14. DOCETAXEL [Suspect]
     Active Substance: DOCETAXEL
     Indication: Breast cancer
     Dosage: 130 MG, Q3W 1 DOSE/3 WEEKS
     Route: 042
     Dates: start: 20150507
  15. DOCETAXEL [Suspect]
     Active Substance: DOCETAXEL
     Dosage: 100 MILLIGRAM, Q3 WEEKS
     Route: 048
     Dates: start: 20161028, end: 20161111
  16. DOCETAXEL [Suspect]
     Active Substance: DOCETAXEL
     Dosage: 130 MILLIGRAM, Q 3WEEKS
     Route: 042
     Dates: start: 20150328, end: 20150903
  17. EXEMESTANE [Suspect]
     Active Substance: EXEMESTANE
     Indication: Breast cancer
     Dosage: 25 MG, QD (CUMULATIVE DOSE TO FIRST REACTION: 51375.0 MG)
     Route: 048
     Dates: start: 20090921
  18. EXEMESTANE [Suspect]
     Active Substance: EXEMESTANE
     Dosage: 25 NG, QD (1/DAY)  (CUMULATIVE DOSE TO FIRST REACTION: 4150.0 NG)
     Route: 048
     Dates: start: 20151021
  19. EXEMESTANE [Suspect]
     Active Substance: EXEMESTANE
     Dosage: 1 DOSAGE FORM, DAILY
     Route: 048
     Dates: start: 201607
  20. EXEMESTANE [Suspect]
     Active Substance: EXEMESTANE
     Dosage: 25 MG, QD (CUMULATIVE DOSE TO FIRST REACTION: 1023.9583 MG)
     Route: 048
     Dates: start: 20150328
  21. EXEMESTANE [Suspect]
     Active Substance: EXEMESTANE
     Dosage: 25 MILLIGRAM, QD
     Dates: start: 201607, end: 20160921
  22. HERCEPTIN [Suspect]
     Active Substance: TRASTUZUMAB
     Indication: Breast cancer
     Dosage: 462 MG (LOADING DOSE 3/WEEK (CV))
     Route: 042
     Dates: start: 20150506, end: 20150506
  23. HERCEPTIN [Suspect]
     Active Substance: TRASTUZUMAB
     Dosage: 1071 MG, QW (357 MG, EVERY 3 WEEKS, LAST DOSE N 30 JUN 2016)
     Route: 042
  24. NAVELBINE [Suspect]
     Active Substance: VINORELBINE TARTRATE
     Indication: Breast cancer
     Dosage: 100 MG (FROM 01 SEP 2016)
     Route: 048
     Dates: start: 20161028
  25. PERTUZUMAB [Suspect]
     Active Substance: PERTUZUMAB
     Indication: Breast cancer
     Dosage: 2520 MG (LOADING DOSE)
     Route: 042
     Dates: start: 20150507, end: 20150507
  26. PERTUZUMAB [Suspect]
     Active Substance: PERTUZUMAB
     Dosage: 420 MG, Q3W 1 DOSE/3 WEEKS, EVERY 3 WEEKS (CUMULATIVE DOSE TO FIRST REACTION: 380.0 MG)
     Route: 042
     Dates: start: 20150527, end: 20160630
  27. PERTUZUMAB [Suspect]
     Active Substance: PERTUZUMAB
     Dosage: 840 MG, Q3W (LOADING DOSE) (CUMULATIVE DOSE TO FIRST REACTION: 40.0 MG)
     Route: 042
     Dates: start: 20150507, end: 20150507
  28. PERTUZUMAB [Suspect]
     Active Substance: PERTUZUMAB
     Dosage: 420 MG, Q3W UNK, LOADING DOSE 3/WEEK (CV)(CUMULATIVE DOSE TO FIRST REACTION: 8380.0 MG)
     Route: 042
     Dates: start: 20160630
  29. PERTUZUMAB [Suspect]
     Active Substance: PERTUZUMAB
     Dosage: 2520 MILLIGRAM, WEEKLY, LOADING DOSE
     Route: 042
     Dates: start: 20150507, end: 20150507
  30. TAXOTERE [Suspect]
     Active Substance: DOCETAXEL
     Indication: Breast cancer
     Dosage: 130 MG, Q3W (CUMULATIVE DOSE TO FIRST REACTION: 6.1904764 MG)
     Route: 042
     Dates: start: 20150507, end: 20150903
  31. TAXOTERE [Suspect]
     Active Substance: DOCETAXEL
     Dosage: 130 MG, Q3W (CUMULATIVE DOSE TO FIRST REACTION: 730.4762 MG)
     Route: 042
     Dates: start: 20150903
  32. ADO-TRASTUZUMAB EMTANSINE [Suspect]
     Active Substance: ADO-TRASTUZUMAB EMTANSINE
     Indication: Breast cancer
     Dosage: 462 MG, QW CUMULATIVE DOSE TO FIRST REACTION: 132.0 MG)
     Route: 042
     Dates: start: 20150506, end: 20150506
  33. ADO-TRASTUZUMAB EMTANSINE [Suspect]
     Active Substance: ADO-TRASTUZUMAB EMTANSINE
     Dosage: 357 MG, QW (CUMULATIVE DOSE TO FIRST REACTION: 969 MG)
     Route: 042
     Dates: start: 20150527, end: 20160630
  34. ADO-TRASTUZUMAB EMTANSINE [Suspect]
     Active Substance: ADO-TRASTUZUMAB EMTANSINE
     Dosage: 224 MG, Q3W (CUMULATIVE DOSE TO FIRST REACTION: 8256.0 MG)
     Route: 042
     Dates: start: 20170620, end: 20170830
  35. ADO-TRASTUZUMAB EMTANSINE [Suspect]
     Active Substance: ADO-TRASTUZUMAB EMTANSINE
     Dosage: 1 OT, QW (20 JUN 2017)
     Route: 042
     Dates: start: 20170830
  36. VINORELBINE TARTRATE [Suspect]
     Active Substance: VINORELBINE TARTRATE
     Indication: Breast cancer
     Dosage: 100 MG, QD OU (CUMULATIVE DOSE TO FIRST REACTION: 2100 MG)
     Route: 048
     Dates: start: 20160901, end: 20160930
  37. VINORELBINE TARTRATE [Suspect]
     Active Substance: VINORELBINE TARTRATE
     Dosage: 100 MG, QD (1/DAY) (CUMULATIVE DOSE TO FIRST REACTION: 2100 MG)
     Route: 048
     Dates: start: 20161028, end: 20161028
  38. VINORELBINE TARTRATE [Suspect]
     Active Substance: VINORELBINE TARTRATE
     Dosage: 100 MG, QD (CUMULATIVE DOSE TO FIRST REACTION: 2100 MG)
     Route: 048
     Dates: start: 20161111
  39. VINORELBINE [Suspect]
     Active Substance: VINORELBINE TARTRATE
     Indication: Product used for unknown indication
     Dosage: 100 MILLIGRAM, QD
     Route: 048
     Dates: start: 20161111
  40. VINORELBINE [Suspect]
     Active Substance: VINORELBINE TARTRATE
     Dosage: 100 MILLIGRAM
     Route: 048
     Dates: start: 20161028, end: 20161028
  41. XELODA [Suspect]
     Active Substance: CAPECITABINE
     Indication: Breast cancer
     Dosage: 3300 MILLIGRAM
     Route: 048
     Dates: start: 20160901, end: 20160914
  42. XELODA [Suspect]
     Active Substance: CAPECITABINE
     Dosage: 3300 MG (FROM 01 SEP 2016)
     Route: 048
     Dates: start: 20160901, end: 20160914
  43. CALCIUM CARBONATE\CHOLECALCIFEROL [Concomitant]
     Active Substance: CALCIUM CARBONATE\CHOLECALCIFEROL
     Indication: Product used for unknown indication
     Dosage: UNK
     Route: 048
     Dates: start: 20171027
  44. APREPITANT [Concomitant]
     Active Substance: APREPITANT
     Indication: Prophylaxis
     Dosage: ROUTE:065
     Dates: start: 20150527, end: 20150905
  45. ARIMIDEX [Concomitant]
     Active Substance: ANASTROZOLE
     Indication: Product used for unknown indication
     Dosage: UNK
  46. BECLOMETHASONE DIPROPIONATE [Concomitant]
     Active Substance: BECLOMETHASONE DIPROPIONATE
     Indication: Wheezing
     Dosage: UNK
     Dates: end: 20160108
  47. CALAMINE [Concomitant]
     Active Substance: CALAMINE\FERRIC OXIDE RED\ZINC OXIDE
     Indication: Product used for unknown indication
     Dosage: UNK, PRN (1 APPLICATION, AS NEEDED)
     Dates: start: 20150915, end: 20151021
  48. CALCIUM GLUCONATE [Concomitant]
     Active Substance: CALCIUM GLUCONATE
     Indication: Product used for unknown indication
     Dosage: ROUTE:065
     Dates: end: 20170201
  49. CODEINE PHOSPHATE [Concomitant]
     Active Substance: CODEINE PHOSPHATE
     Indication: Product used for unknown indication
     Dosage: 60 MG, QD (QDS AS NEEDED) (CUMULATIVE DOSE TO FIRST REACTION: 1560.0 MG)
     Dates: start: 20150603
  50. CYCLIZINE [Concomitant]
     Active Substance: CYCLIZINE
     Indication: Prophylaxis
     Dosage: 150 MG, QD (CUMULATIVE DOSE TO FIRST REACTION: 6450 MG)
     Route: 048
     Dates: start: 20150603, end: 20150715
  51. CYCLIZINE [Concomitant]
     Active Substance: CYCLIZINE
     Dosage: 50 UNK
     Route: 048
  52. DEXAMETHASONE [Concomitant]
     Active Substance: DEXAMETHASONE
     Indication: Premedication
     Dosage: 8 MG (ROUTE: 065) (CUMULATIVE DOSE TO FIRST REACTION: 197 DF)
     Route: 048
     Dates: start: 20150504, end: 20150904
  53. DEXAMETHASONE [Concomitant]
     Active Substance: DEXAMETHASONE
     Dosage: 1 DOSAGE FORM, QD (CUMULATIVE DOSE TO FIRST REACTION: 197 DF) (ROUTE: 065)
     Route: 048
     Dates: start: 20150504, end: 20150904
  54. DEXAMETHASONE [Concomitant]
     Active Substance: DEXAMETHASONE
     Dosage: 1 DOSAGE FORM, QD (CUMULATIVE DOSE TO FIRST REACTION: 197 DF) (ROUTE: 065)
     Route: 048
     Dates: start: 20150506, end: 20150717
  55. DEXAMETHASONE [Concomitant]
     Active Substance: DEXAMETHASONE
     Dosage: UNK (CUMULATIVE DOSE TO FIRST REACTION: 197 DF) (ROUTE: 065)
     Route: 048
     Dates: start: 20150506, end: 20150717
  56. DEXAMETHASONE [Concomitant]
     Active Substance: DEXAMETHASONE
     Dosage: 1 DF, QD (1/DAY) (ROUTE: 065) (CUMULATIVE DOSE TO FIRST REACTION: 197 DF)
     Route: 048
     Dates: start: 201607, end: 20160921
  57. DEXAMETHASONE [Concomitant]
     Active Substance: DEXAMETHASONE
     Dosage: 2 MG (CUMULATIVE DOSE TO FIRST REACTION: 197 DF) (ROUTE: 065)
     Route: 048
     Dates: start: 20160713, end: 20161004
  58. DEXAMETHASONE [Concomitant]
     Active Substance: DEXAMETHASONE
     Dosage: 1 DOSAGE FORM, QD (CUMULATIVE DOSE TO FIRST REACTION: 197 DF) (ROUTE: 065)
     Route: 048
     Dates: start: 20160713, end: 201607
  59. DEXAMETHASONE [Concomitant]
     Active Substance: DEXAMETHASONE
     Dosage: UNK (CUMULATIVE DOSE TO FIRST REACTION: 197 DF) (ROUTE: 065)
     Route: 048
     Dates: start: 20160713, end: 201707
  60. DEXAMETHASONE [Concomitant]
     Active Substance: DEXAMETHASONE
     Dosage: 2 MG, (CUMULATIVE DOSE TO FIRST REACTION: 197 DF) (ROUTE: 065)
     Route: 048
     Dates: start: 20161004, end: 20161123
  61. DEXAMETHASONE [Concomitant]
     Active Substance: DEXAMETHASONE
     Dosage: 1 DOSAGE FORM, QD (CUMULATIVE DOSE TO FIRST REACTION: 197 DF) (ROUTE: 065)
     Route: 048
     Dates: start: 20161004, end: 20161123
  62. DEXAMETHASONE [Concomitant]
     Active Substance: DEXAMETHASONE
     Dosage: 2 MILLIGRAM (CUMULATIVE DOSE TO FIRST REACTION: 197 DF) (ROUTE: 065)
     Dates: start: 20161014
  63. DEXAMETHASONE [Concomitant]
     Active Substance: DEXAMETHASONE
     Dosage: 1 DOSAGE FORM, QD (CUMULATIVE DOSE TO FIRST REACTION: 197 DF) (ROUTE: 065)
     Route: 048
     Dates: start: 20161123, end: 20161130
  64. DEXAMETHASONE [Concomitant]
     Active Substance: DEXAMETHASONE
     Dosage: 1 DOSAGE FORM, QD (CUMULATIVE DOSE TO FIRST REACTION: 197 DF) (ROUTE: 065)
     Route: 048
     Dates: start: 20161130, end: 20161201
  65. DEXAMETHASONE [Concomitant]
     Active Substance: DEXAMETHASONE
     Dosage: UNK (CUMULATIVE DOSE TO FIRST REACTION: 197 DF) (ROUTE: 065)
     Route: 048
     Dates: start: 20161130, end: 20161201
  66. DEXAMETHASONE [Concomitant]
     Active Substance: DEXAMETHASONE
     Dosage: 1 DOSAGE FORM, QD (CUMULATIVE DOSE TO FIRST REACTION: 197 DF) (ROUTE: 065)
     Route: 048
     Dates: start: 201612, end: 20170510
  67. DEXAMETHASONE [Concomitant]
     Active Substance: DEXAMETHASONE
     Dosage: UNK (CUMULATIVE DOSE TO FIRST REACTION: 197 DF) (ROUTE: 065)
     Route: 048
     Dates: start: 201612, end: 201612
  68. DEXAMETHASONE [Concomitant]
     Active Substance: DEXAMETHASONE
     Dosage: 1 DOSAGE FORM, QD (CUMULATIVE DOSE TO FIRST REACTION: 197 DF) (ROUTE: 065)
     Route: 048
     Dates: start: 201612, end: 201612
  69. DEXAMETHASONE [Concomitant]
     Active Substance: DEXAMETHASONE
     Dosage: (CUMULATIVE DOSE TO FIRST REACTION: 197 DF) (ROUTE: 065)
     Route: 048
     Dates: start: 20170216, end: 20170830
  70. DEXAMETHASONE [Concomitant]
     Active Substance: DEXAMETHASONE
     Dosage: 2 MG (CUMULATIVE DOSE TO FIRST REACTION: 197 DF) (ROUTE: 065)
     Route: 048
     Dates: start: 20170216, end: 20170830
  71. DEXAMETHASONE [Concomitant]
     Active Substance: DEXAMETHASONE
     Dosage: 2 MILLIGRAM, QD
     Dates: start: 201612, end: 20170510
  72. DEXAMETHASONE [Concomitant]
     Active Substance: DEXAMETHASONE
     Dosage: 2 MILLIGRAM
     Dates: start: 20150504, end: 20150904
  73. DEXAMETHASONE [Concomitant]
     Active Substance: DEXAMETHASONE
     Dosage: 1 DF, QD (1/DAY)
     Route: 048
     Dates: start: 201607, end: 20160921
  74. DEXAMETHASONE [Concomitant]
     Active Substance: DEXAMETHASONE
     Dosage: 1 DOSAGE FORM, QD, 1 DF, QD (1/DAY
     Route: 048
     Dates: start: 20160713
  75. FLUCLOXACILLIN [Concomitant]
     Active Substance: FLUCLOXACILLIN
     Indication: Product used for unknown indication
     Dosage: 250 MG, Q3W (CUMULATIVE DOSE TO FIRST REACTION: 6000 MG)
     Route: 048
     Dates: start: 20150603, end: 20150610
  76. FLUCLOXACILLIN [Concomitant]
     Active Substance: FLUCLOXACILLIN
     Dosage: 750 MILLIGRAM, QD
  77. FLUCONAZOLE [Concomitant]
     Active Substance: FLUCONAZOLE
     Indication: Product used for unknown indication
     Dosage: UNK
     Dates: start: 20171004, end: 20171004
  78. GELCLAIR [HYALURONATE SODIUM;POVIDONE] [Concomitant]
     Indication: Product used for unknown indication
     Dosage: UNK, PRN
     Dates: start: 20150514, end: 20150615
  79. LANSOPRAZOLE [Concomitant]
     Active Substance: LANSOPRAZOLE
     Indication: Product used for unknown indication
     Dosage: UNK, (ROUTE:048)
     Route: 048
     Dates: start: 20150504, end: 20171027
  80. LEVETIRACETAM [Concomitant]
     Active Substance: LEVETIRACETAM
     Indication: Epilepsy
     Dosage: UNK (BID (2/DAY))
     Route: 048
     Dates: start: 20160727, end: 20160810
  81. LEVETIRACETAM [Concomitant]
     Active Substance: LEVETIRACETAM
     Dosage: UNK
     Route: 048
     Dates: start: 20160811, end: 20161027
  82. LEVETIRACETAM [Concomitant]
     Active Substance: LEVETIRACETAM
     Dosage: 250 MILLIGRAM
     Route: 048
     Dates: start: 20160627, end: 20171027
  83. LEVETIRACETAM [Concomitant]
     Active Substance: LEVETIRACETAM
     Dosage: 250 MILLIGRAM
     Route: 048
     Dates: start: 20160727, end: 20171027
  84. LOPERAMIDE [Concomitant]
     Active Substance: LOPERAMIDE
     Indication: Product used for unknown indication
     Dosage: 4 MILLIGRAM
     Dates: start: 20150514, end: 20150904
  85. METOCLOPRAMIDE [Concomitant]
     Active Substance: METOCLOPRAMIDE
     Indication: Product used for unknown indication
     Dosage: UNK (SUBSEQUENT DOSE RECEIVED ON 18/NOV/2016) (~~~~; ROUTE:048)
     Route: 042
     Dates: start: 20150506, end: 20150903
  86. METOCLOPRAMIDE [Concomitant]
     Active Substance: METOCLOPRAMIDE
     Dosage: UNK (~~~~; ROUTE:048)
     Route: 048
     Dates: start: 20161118
  87. METOCLOPRAMIDE [Concomitant]
     Active Substance: METOCLOPRAMIDE
     Dosage: 2 DOSAGE FORM QD, (SUBSEQUENT DOSE RECEIVED ON 18/NOV/2016) (~~~~; ROUTE:048) (CUMULATIVE DOSE TO FI
     Route: 048
     Dates: start: 20170301, end: 2017
  88. METOCLOPRAMIDE [Concomitant]
     Active Substance: METOCLOPRAMIDE
     Dosage: UNK (~~~~; ROUTE:048)
     Route: 048
     Dates: start: 20170815, end: 2017
  89. METOCLOPRAMIDE [Concomitant]
     Active Substance: METOCLOPRAMIDE
     Dosage: UNK SUBSEQUENT DOSE RECEIVED ON 18/NOV/2016 (~~~~; ROUTE:048)
     Route: 048
     Dates: start: 20150506, end: 2016
  90. METOCLOPRAMIDE [Concomitant]
     Active Substance: METOCLOPRAMIDE
     Dosage: 2 DOSAGE FORM, QD (~~~~; ROUTE:048) (CUMULATIVE DOSE TO FIRST REACTION: 1660.0 DF)
     Route: 048
     Dates: start: 20170815, end: 2017
  91. METOCLOPRAMIDE [Concomitant]
     Active Substance: METOCLOPRAMIDE
     Dosage: UNK (~~~~; ROUTE:048)
     Route: 048
  92. METOCLOPRAMIDE [Concomitant]
     Active Substance: METOCLOPRAMIDE
     Dosage: 2 DOSAGE FORM, DAILY, 2 DF, QD (1/DAY). UNTIL 2017
     Route: 048
     Dates: start: 20170815
  93. METOCLOPRAMIDE [Concomitant]
     Active Substance: METOCLOPRAMIDE
     Dosage: UNK
  94. METOCLOPRAMIDE [Concomitant]
     Active Substance: METOCLOPRAMIDE
     Dosage: SUBSEQUENT DOSE RECEIVED ON 18/NOV/2016
     Route: 048
     Dates: start: 20170301
  95. NITROFURANTOIN [Concomitant]
     Active Substance: NITROFURANTOIN
     Indication: Product used for unknown indication
     Dosage: UNK
     Dates: start: 20170621, end: 20170623
  96. ONDANSETRON HYDROCHLORIDE [Concomitant]
     Active Substance: ONDANSETRON HYDROCHLORIDE
     Indication: Product used for unknown indication
     Dosage: UNK, (~~~~; ROUTE:048)
     Route: 048
     Dates: start: 20150508, end: 20150904
  97. ONDANSETRON HYDROCHLORIDE [Concomitant]
     Active Substance: ONDANSETRON HYDROCHLORIDE
     Dosage: UNK, (~~~~; ROUTE:048)
     Route: 048
     Dates: start: 20161111, end: 2016
  98. PEGFILGRASTIM [Concomitant]
     Active Substance: PEGFILGRASTIM
     Indication: Product used for unknown indication
     Dosage: UNK
     Route: 058
     Dates: start: 20150506, end: 20150903
  99. CHLORPHENIRAMINE MALEATE [Concomitant]
     Active Substance: CHLORPHENIRAMINE MALEATE
     Indication: Rash
     Dosage: 5 MG, PRN
     Route: 048
     Dates: start: 20150725, end: 20151021
  100. VENTOLIN [Concomitant]
     Active Substance: ALBUTEROL SULFATE
     Indication: Wheezing
     Dosage: UNK
     Dates: start: 20170621, end: 2017
  101. HERBALS\SENNOSIDES [Concomitant]
     Active Substance: HERBALS\SENNOSIDES
     Indication: Constipation
     Dosage: UNK
     Route: 048
     Dates: start: 20161221, end: 20170327
  102. HERBALS\SENNOSIDES [Concomitant]
     Active Substance: HERBALS\SENNOSIDES
     Dosage: UNK
     Route: 048
     Dates: start: 20161221, end: 20170327
  103. KEPPRA [Concomitant]
     Active Substance: LEVETIRACETAM
  104. TRIMETHOPRIM [Concomitant]
     Active Substance: TRIMETHOPRIM
     Indication: Urinary tract infection
     Dosage: UNK, UNKNOWN
     Route: 048
     Dates: start: 20170209, end: 20170216
  105. QUININE SULFATE [Concomitant]
     Active Substance: QUININE SULFATE
     Indication: Muscle spasms
     Dosage: 200 MILLIGRAM
     Route: 048
     Dates: start: 20161123, end: 20171027
  106. RAMIPRIL [Concomitant]
     Active Substance: RAMIPRIL
     Indication: Cough
     Dosage: 5 MG, QD (1/DAY)
     Route: 048
     Dates: start: 20160308, end: 20160602
  107. RAMIPRIL [Concomitant]
     Active Substance: RAMIPRIL
     Dosage: 5 MILLIGRAM, DAILY, 5 MG, QD (1/DAY)
     Route: 048
     Dates: start: 20160308, end: 20160602
  108. RAMIPRIL [Concomitant]
     Active Substance: RAMIPRIL
     Dosage: 435 MILLIGRAM, UNK
  109. AMITRIPTYLINE [Concomitant]
     Active Substance: AMITRIPTYLINE
     Indication: Product used for unknown indication
     Dosage: 10 MILLIGRAM, QD
     Route: 048
  110. AMOXICILLIN [Concomitant]
     Active Substance: AMOXICILLIN
     Indication: Oropharyngeal pain
     Dosage: 9 DF, TID
     Route: 048
     Dates: start: 20151104, end: 20151111
  111. BISOPROLOL [Concomitant]
     Active Substance: BISOPROLOL
     Indication: Palpitations
     Dosage: UNK
     Route: 048
     Dates: start: 20160602, end: 20171027
  112. BISOPROLOL [Concomitant]
     Active Substance: BISOPROLOL
     Dosage: UNK
     Route: 048
     Dates: start: 20160602, end: 20171027
  113. COCODAMOL [Concomitant]
     Active Substance: ACETAMINOPHEN\CODEINE PHOSPHATE
     Indication: Headache
     Dosage: UNK
     Route: 048
     Dates: start: 20160929, end: 20171027
  114. CODEINE [Concomitant]
     Active Substance: CODEINE
     Indication: Diarrhoea
  115. CODEINE [Concomitant]
     Active Substance: CODEINE
     Dosage: UNK
     Route: 048
     Dates: start: 20150603, end: 20150715
  116. CODEINE [Concomitant]
     Active Substance: CODEINE
     Dosage: UNK
     Route: 048
     Dates: start: 20150603, end: 20150715
  117. CHLORHEXIDINE GLUCONATE [Concomitant]
     Active Substance: CHLORHEXIDINE GLUCONATE
     Indication: Mucosal inflammation
     Dosage: UNK, PRN 1 MOUTH WASH AS NEEDED ()
     Route: 048
     Dates: start: 20150514, end: 20150715
  118. HYDROCORTISONE [Concomitant]
     Active Substance: HYDROCORTISONE
     Indication: Rash
     Dosage: UNK,LOTION APPLICATION ()
     Route: 061
  119. IBUPROFEN [Concomitant]
     Active Substance: IBUPROFEN
     Indication: Headache
     Dosage: 1 DF, QD
     Route: 048
     Dates: start: 20170201
  120. LACTULOSE [Concomitant]
     Active Substance: LACTULOSE
     Indication: Neuralgia
     Dosage: UNK
     Route: 048
     Dates: start: 20161221, end: 20171021
  121. LACTULOSE [Concomitant]
     Active Substance: LACTULOSE
     Dosage: UNK
     Route: 048
     Dates: start: 201603, end: 20171021
  122. LACTULOSE [Concomitant]
     Active Substance: LACTULOSE
     Dosage: UNK
     Route: 048
  123. LACTULOSE [Concomitant]
     Active Substance: LACTULOSE
     Dosage: UNK
     Route: 048
  124. LOSARTAN [Concomitant]
     Active Substance: LOSARTAN
     Indication: Palpitations
     Dosage: 50 MILLIGRAM
     Route: 048
     Dates: start: 20160602, end: 20171027
  125. LOSARTAN [Concomitant]
     Active Substance: LOSARTAN
     Dosage: 50 UNK
     Route: 048
  126. ACETAMINOPHEN [Concomitant]
     Active Substance: ACETAMINOPHEN
     Indication: Headache
     Dosage: UNK
     Route: 048
     Dates: start: 20160629, end: 20171027
  127. SPIRONOLACTONE [Concomitant]
     Active Substance: SPIRONOLACTONE
     Indication: Palpitations
     Dosage: UNK, UNKNOWN
     Route: 048
     Dates: start: 20160602, end: 20171027
  128. AROMASIN [Concomitant]
     Active Substance: EXEMESTANE

REACTIONS (35)
  - Poor peripheral circulation [Unknown]
  - Vaginal discharge [Recovered/Resolved]
  - Oropharyngeal pain [Recovered/Resolved]
  - Muscle twitching [Unknown]
  - Neuralgia [Not Recovered/Not Resolved]
  - Depressed mood [Not Recovered/Not Resolved]
  - Hiccups [Not Recovered/Not Resolved]
  - Fatigue [Not Recovered/Not Resolved]
  - Muscle spasms [Unknown]
  - Left ventricular dysfunction [Not Recovered/Not Resolved]
  - Weight decreased [Unknown]
  - Abdominal pain [Unknown]
  - Alopecia [Unknown]
  - Chest pain [Recovered/Resolved]
  - Constipation [Recovered/Resolved]
  - Cough [Recovered/Resolved]
  - Diarrhoea [Recovered/Resolved]
  - Diarrhoea [Recovered/Resolved]
  - Dizziness [Unknown]
  - Nail infection [Recovered/Resolved]
  - Headache [Recovered/Resolved]
  - Headache [Recovered/Resolved]
  - Mucosal inflammation [Unknown]
  - Nail disorder [Recovered/Resolved]
  - Nausea [Recovered/Resolved]
  - Nausea [Recovered/Resolved]
  - Neuropathy peripheral [Not Recovered/Not Resolved]
  - Neuropathy peripheral [Not Recovered/Not Resolved]
  - Palpitations [Not Recovered/Not Resolved]
  - Rash [Recovered/Resolved]
  - Seizure [Unknown]
  - Urinary tract infection [Recovered/Resolved]
  - Nasopharyngitis [Recovered/Resolved]
  - Lacrimation increased [Not Recovered/Not Resolved]
  - Wheezing [Recovered/Resolved]

NARRATIVE: CASE EVENT DATE: 20150508
